FAERS Safety Report 7309293-4 (Version None)
Quarter: 2011Q1

REPORT INFORMATION
  Report Type: 
  Country: None (occurrence: None)
  Receive Date: 20110223
  Receipt Date: 20110218
  Transmission Date: 20110831
  Serious: Yes (Death, Hospitalization)
  Sender: FDA-Public Use
  Company Number: US-CELGENEUS-163-21880-11012797

PATIENT
  Sex: Male

DRUGS (3)
  1. NITROGLYCERIN [Concomitant]
     Indication: CORONARY ARTERY DISEASE
     Route: 065
     Dates: start: 20080101
  2. PLAVIX [Concomitant]
     Route: 065
     Dates: start: 20080101
  3. REVLIMID [Suspect]
     Indication: MULTIPLE MYELOMA
     Route: 048
     Dates: start: 20100528, end: 20101210

REACTIONS (2)
  - ARTERIOSCLEROSIS CORONARY ARTERY [None]
  - MULTIPLE MYELOMA [None]
